FAERS Safety Report 20037701 (Version 3)
Quarter: 2021Q4

REPORT INFORMATION
  Report Type: Spontaneous
  Country: IN (occurrence: IN)
  Receive Date: 20211105
  Receipt Date: 20211117
  Transmission Date: 20220303
  Serious: Yes (Life-Threatening, Hospitalization, Other)
  Sender: FDA-Public Use
  Company Number: IN-TORRENT-00002937

PATIENT
  Age: 72 Year
  Sex: Female

DRUGS (6)
  1. ESOMEPRAZOLE [Suspect]
     Active Substance: ESOMEPRAZOLE
     Indication: Product used for unknown indication
     Dosage: TDS (THREE TIMES DAILY); BEFORE BREAKFAST (BBF), BEFORE LUNCH (BL) AND BEFORE DINNER (BD).
  2. Cremasan [Concomitant]
     Indication: Product used for unknown indication
     Dosage: 3 TSF (TABLESPOON); ?AT NIGHT (HS) PER ORAL (PO)
     Route: 048
  3. ELIQUIS [Concomitant]
     Active Substance: APIXABAN
     Indication: Product used for unknown indication
     Dosage: MORNING AND EVENING
     Route: 048
  4. ONDANSETRON HYDROCHLORIDE [Concomitant]
     Active Substance: ONDANSETRON HYDROCHLORIDE
     Indication: Product used for unknown indication
     Dosage: MORNING AND EVENING (1 AMP 2 TIMES DAILY (BD))
  5. ACETAMINOPHEN [Concomitant]
     Active Substance: ACETAMINOPHEN
     Indication: Product used for unknown indication
     Dosage: MORNING, NOON, AND NIGHT; (3 AMP IN 100 ML NORMAL SALINE (NS))
  6. SLANAC [Concomitant]
     Indication: Product used for unknown indication
     Dosage: MORNING, NOON, EVENING, AND NIGHT (4 TIMES DAILY (QDS))
     Route: 061

REACTIONS (2)
  - Hypoglycaemia [Recovered/Resolved]
  - Pulmonary oedema [Recovering/Resolving]

NARRATIVE: CASE EVENT DATE: 20211021
